FAERS Safety Report 11157524 (Version 1)
Quarter: 2015Q2

REPORT INFORMATION
  Report Type: Spontaneous
  Country: US (occurrence: US)
  Receive Date: 20150603
  Receipt Date: 20150603
  Transmission Date: 20150821
  Serious: No
  Sender: FDA-Public Use
  Company Number: US-009507513-1505USA006727

PATIENT
  Age: 61 Year
  Sex: Male

DRUGS (5)
  1. REMERON [Suspect]
     Active Substance: MIRTAZAPINE
     Dosage: 15 MG, HS
     Route: 048
  2. REMERON [Suspect]
     Active Substance: MIRTAZAPINE
     Indication: DEPRESSION
     Dosage: 45 MG, HS
     Route: 048
     Dates: start: 200705, end: 201402
  3. FLECAINIDE [Concomitant]
     Active Substance: FLECAINIDE
  4. REMERON [Suspect]
     Active Substance: MIRTAZAPINE
     Dosage: 7.5 MG, HS
     Route: 048
     Dates: end: 20150305
  5. REMERON [Suspect]
     Active Substance: MIRTAZAPINE
     Dosage: 30 MG, HS
     Route: 048
     Dates: start: 201402

REACTIONS (10)
  - Abdominal pain [Recovering/Resolving]
  - Decreased appetite [Recovering/Resolving]
  - Insomnia [Recovering/Resolving]
  - Fatigue [Recovering/Resolving]
  - Insomnia [Recovering/Resolving]
  - Abdominal pain upper [Recovering/Resolving]
  - Headache [Recovering/Resolving]
  - Feeling drunk [Recovering/Resolving]
  - Headache [Recovering/Resolving]
  - Weight decreased [Recovering/Resolving]

NARRATIVE: CASE EVENT DATE: 20150305
